FAERS Safety Report 4592660-X (Version None)
Quarter: 2005Q1

REPORT INFORMATION
  Report Type: 
  Country: None (occurrence: None)
  Receive Date: 20050218
  Receipt Date: 20050207
  Transmission Date: 20050727
  Serious: Yes (Hospitalization)
  Sender: FDA-Public Use
  Company Number: 2005CG00287

PATIENT
  Age: 86 Year
  Sex: Male
  Weight: 85 kg

DRUGS (10)
  1. OMEPRAZOLE [Suspect]
     Dosage: 40 MG QD PO
     Route: 048
     Dates: end: 20041231
  2. HYPERIUM [Suspect]
     Dosage: 1 MG QD PO
     Route: 048
     Dates: start: 20041223, end: 20041231
  3. TRILEPTAL [Suspect]
     Dosage: 300 MG QD PO
     Route: 048
     Dates: start: 20041211, end: 20041215
  4. TRILEPTAL [Suspect]
     Dosage: 600 MG QD PO
     Route: 048
     Dates: start: 20041212, end: 20041215
  5. ACETAMINOPHEN [Concomitant]
  6. DEBRIDAT [Concomitant]
  7. FORLAX [Concomitant]
  8. CORDARONE [Concomitant]
  9. SOLUPRED [Concomitant]
  10. CALCIPARINE [Concomitant]

REACTIONS (3)
  - ERYTHEMA [None]
  - RASH PUSTULAR [None]
  - SKIN EXFOLIATION [None]
